FAERS Safety Report 20017474 (Version 1)
Quarter: 2021Q4

REPORT INFORMATION
  Report Type: Spontaneous
  Country: GB (occurrence: GB)
  Receive Date: 20211030
  Receipt Date: 20211030
  Transmission Date: 20220303
  Serious: Yes (Other)
  Sender: FDA-Public Use
  Company Number: None

PATIENT
  Age: 54 Year
  Sex: Female
  Weight: 57.15 kg

DRUGS (2)
  1. FLUCONAZOLE [Suspect]
     Active Substance: FLUCONAZOLE
     Indication: Ill-defined disorder
     Route: 065
  2. SENNA ACUTIFOLIAE LEAF [Concomitant]
     Indication: Ill-defined disorder

REACTIONS (1)
  - Depression [Unknown]
